FAERS Safety Report 18528450 (Version 1)
Quarter: 2020Q4

REPORT INFORMATION
  Report Type: Spontaneous
  Country: US (occurrence: US)
  Receive Date: 20201120
  Receipt Date: 20201120
  Transmission Date: 20210114
  Serious: Yes (Other)
  Sender: FDA-Public Use
  Company Number: US-PURDUE-USA-2020-0164198

PATIENT
  Sex: Male

DRUGS (1)
  1. OXYCONTIN [Suspect]
     Active Substance: OXYCODONE HYDROCHLORIDE
     Indication: PRODUCT USED FOR UNKNOWN INDICATION
     Route: 048

REACTIONS (7)
  - Cardiac disorder [Unknown]
  - Heart valve incompetence [Unknown]
  - Hyperaesthesia [Unknown]
  - Bradyphrenia [Unknown]
  - Cerebrovascular accident [Unknown]
  - Disturbance in attention [Unknown]
  - Learning disability [Unknown]
